FAERS Safety Report 22635262 (Version 3)
Quarter: 2024Q1

REPORT INFORMATION
  Report Type: Report from Study
  Country: CA (occurrence: CA)
  Receive Date: 20230623
  Receipt Date: 20240117
  Transmission Date: 20240409
  Serious: Yes (Hospitalization)
  Sender: FDA-Public Use
  Company Number: CA-PFIZER INC-2021493805

PATIENT
  Age: 71 Year
  Sex: Male

DRUGS (28)
  1. RITUXIMAB [Suspect]
     Active Substance: RITUXIMAB
     Indication: Rheumatoid arthritis
     Dosage: 1000 MG
     Route: 042
  2. RITUXIMAB [Suspect]
     Active Substance: RITUXIMAB
     Dosage: 1000 MG, 1 EVERY 15 DAYS
     Route: 042
  3. ACETAMINOPHEN [Concomitant]
     Active Substance: ACETAMINOPHEN
     Indication: Pyrexia
     Dosage: 500 MG
     Route: 048
  4. ACETAMINOPHEN [Concomitant]
     Active Substance: ACETAMINOPHEN
     Indication: Pain
  5. ASPIRIN [Concomitant]
     Active Substance: ASPIRIN
     Dosage: 81 MG, 1X/DAY
     Route: 048
  6. ASPIRIN [Concomitant]
     Active Substance: ASPIRIN
     Dosage: 81 MG, 1X/DAY
     Route: 048
  7. ATORVASTATIN [Concomitant]
     Active Substance: ATORVASTATIN
     Indication: Lipids
     Dosage: 40 MG, 1X/DAY
     Route: 048
  8. BENADRYL [Concomitant]
     Active Substance: DIPHENHYDRAMINE HYDROCHLORIDE
     Indication: Premedication
     Dosage: 50 MG
     Route: 048
  9. BRILINTA [Concomitant]
     Active Substance: TICAGRELOR
     Dosage: 50 MG, 1X/DAY
     Route: 048
  10. BRILINTA [Concomitant]
     Active Substance: TICAGRELOR
     Dosage: 90 MG, 1X/DAY
     Route: 048
  11. CALCIUM [Concomitant]
     Active Substance: CALCIUM
     Dosage: 500 MG, 2X/DAY
     Route: 048
  12. CELECOXIB [Concomitant]
     Active Substance: CELECOXIB
     Dosage: 200 MG
     Route: 048
  13. DUTASTERIDE [Concomitant]
     Active Substance: DUTASTERIDE
     Dosage: 0.5 MG, 1X/DAY
     Route: 048
  14. POLYETHYLENE GLYCOLS [Concomitant]
     Active Substance: POLYETHYLENE GLYCOLS
     Indication: Constipation
     Dosage: 17 G, 1X/DAY
     Route: 048
  15. METHYLPREDNISOLONE SODIUM SUCCINATE [Concomitant]
     Active Substance: METHYLPREDNISOLONE SODIUM SUCCINATE
     Indication: Premedication
     Dosage: 100 MG
     Route: 042
  16. NASONEX [Concomitant]
     Active Substance: MOMETASONE FUROATE
     Dosage: 50 UG, 1X/DAY
     Route: 045
  17. PANTOPRAZOLE [Concomitant]
     Active Substance: PANTOPRAZOLE
     Dosage: 40 MG, 2X/DAY
     Route: 048
  18. PREDNISONE [Concomitant]
     Active Substance: PREDNISONE
     Dosage: 15 MG, 1X/DAY
     Route: 048
  19. RELAXAN [GALLAMINE TRIETHIODIDE] [Concomitant]
     Dosage: 17 G
     Route: 048
  20. RISEDRONATE SODIUM [Concomitant]
     Active Substance: RISEDRONATE SODIUM
     Indication: Osteoporosis
     Dosage: 35 MG, WEEKLY
     Route: 048
  21. TRAZODONE [Concomitant]
     Active Substance: TRAZODONE HYDROCHLORIDE
     Dosage: 50 MG
     Route: 065
  22. TYLENOL [Concomitant]
     Active Substance: ACETAMINOPHEN
     Indication: Premedication
     Dosage: 650 MG
     Route: 048
  23. VITAMIN D3 [Concomitant]
     Active Substance: CHOLECALCIFEROL
     Dosage: 10000 IU, WEEKLY
     Route: 048
  24. DICLOFENAC [Concomitant]
     Active Substance: DICLOFENAC
     Indication: Pain
     Dosage: 50 MG, 2X/DAY
     Route: 065
  25. DICLOFENAC [Concomitant]
     Active Substance: DICLOFENAC
     Indication: Inflammation
  26. SULFASALAZINE [Concomitant]
     Active Substance: SULFASALAZINE
     Indication: Rheumatoid arthritis
     Route: 065
  27. ATORVASTATIN CALCIUM [Concomitant]
     Active Substance: ATORVASTATIN CALCIUM
     Indication: Lipids
     Dosage: 40.0 MG, 1X/DAY
     Route: 048
  28. SOLU-MEDROL [Concomitant]
     Active Substance: METHYLPREDNISOLONE SODIUM SUCCINATE

REACTIONS (3)
  - Urinary tract infection [Recovered/Resolved]
  - Blood pressure systolic abnormal [Recovered/Resolved]
  - Heart rate decreased [Recovered/Resolved]
